FAERS Safety Report 16653537 (Version 3)
Quarter: 2020Q2

REPORT INFORMATION
  Report Type: Spontaneous
  Country: US (occurrence: US)
  Receive Date: 20190731
  Receipt Date: 20200601
  Transmission Date: 20200713
  Serious: Yes (Other)
  Sender: FDA-Public Use
  Company Number: US-GILEAD-2019-0420404

PATIENT
  Age: 44 Year
  Sex: Male

DRUGS (35)
  1. FLEXERIL [Concomitant]
     Active Substance: CYCLOBENZAPRINE HYDROCHLORIDE
  2. HYDRODIURIL [Concomitant]
     Active Substance: HYDROCHLOROTHIAZIDE
  3. ATRIPLA [Suspect]
     Active Substance: EFAVIRENZ\EMTRICITABINE\TENOFOVIR DISOPROXIL FUMARATE
     Indication: HIV INFECTION
     Dosage: UNK
     Route: 048
     Dates: start: 201205
  4. AMLODIPINE [Concomitant]
     Active Substance: AMLODIPINE BESYLATE
  5. SINGULAIR [Concomitant]
     Active Substance: MONTELUKAST SODIUM
  6. DECADRON [Concomitant]
     Active Substance: DEXAMETHASONE
  7. ZITHROMAX [Concomitant]
     Active Substance: AZITHROMYCIN DIHYDRATE
  8. ROCEPHIN [Concomitant]
     Active Substance: CEFTRIAXONE SODIUM
  9. TYLENOL [Concomitant]
     Active Substance: ACETAMINOPHEN
  10. PROTONIX [Concomitant]
     Active Substance: PANTOPRAZOLE SODIUM
  11. PROCARDIA [Concomitant]
     Active Substance: NIFEDIPINE
  12. MOTRIN [Concomitant]
     Active Substance: IBUPROFEN
  13. FLOMAX [Concomitant]
     Active Substance: TAMSULOSIN HYDROCHLORIDE
  14. ZOCOR [Concomitant]
     Active Substance: SIMVASTATIN
  15. FLONASE [Concomitant]
     Active Substance: FLUTICASONE PROPIONATE
  16. PHENERGAN [Concomitant]
     Active Substance: PROMETHAZINE HYDROCHLORIDE
  17. VANCOMYCIN [Concomitant]
     Active Substance: VANCOMYCIN
  18. COMPLERA [Suspect]
     Active Substance: EMTRICITABINE\RILPIVIRINE HYDROCHLORIDE\TENOFOVIR DISOPROXIL FUMARATE
     Indication: HIV INFECTION
     Dosage: UNK
     Route: 048
     Dates: start: 201401, end: 201607
  19. GENVOYA [Concomitant]
     Active Substance: COBICISTAT\ELVITEGRAVIR\EMTRICITABINE\TENOFOVIR ALAFENAMIDE FUMARATE
  20. CHERATUSSIN AC [Concomitant]
     Active Substance: CODEINE PHOSPHATE\GUAIFENESIN
  21. COMPLERA [Suspect]
     Active Substance: EMTRICITABINE\RILPIVIRINE HYDROCHLORIDE\TENOFOVIR DISOPROXIL FUMARATE
     Dosage: UNK
     Route: 065
     Dates: start: 201401, end: 201706
  22. LISINOPRIL. [Concomitant]
     Active Substance: LISINOPRIL
  23. CEPACOL SORE THROAT [BENZOCAINE;MENTHOL] [Concomitant]
  24. LEVAQUIN [Concomitant]
     Active Substance: LEVOFLOXACIN
  25. ZOFRAN [Concomitant]
     Active Substance: ONDANSETRON HYDROCHLORIDE
  26. ZANTAC [Concomitant]
     Active Substance: RANITIDINE HYDROCHLORIDE
  27. CLARITIN [Concomitant]
     Active Substance: LORATADINE
  28. TORADOL [Concomitant]
     Active Substance: KETOROLAC TROMETHAMINE
  29. LORTAB [Concomitant]
     Active Substance: ACETAMINOPHEN\HYDROCODONE BITARTRATE
  30. COZAAR [Concomitant]
     Active Substance: LOSARTAN POTASSIUM
  31. AUGMENTIN [Concomitant]
     Active Substance: AMOXICILLIN\CLAVULANATE POTASSIUM
  32. BICILLIN L-A [Concomitant]
     Active Substance: PENICILLIN G BENZATHINE
  33. ATRIPLA [Suspect]
     Active Substance: EFAVIRENZ\EMTRICITABINE\TENOFOVIR DISOPROXIL FUMARATE
     Dosage: UNK
     Route: 065
     Dates: start: 20130123, end: 201401
  34. HYZAAR [Concomitant]
     Active Substance: HYDROCHLOROTHIAZIDE\LOSARTAN POTASSIUM
  35. ZESTORETIC [Concomitant]
     Active Substance: HYDROCHLOROTHIAZIDE\LISINOPRIL

REACTIONS (10)
  - Anxiety [Unknown]
  - Dizziness [Unknown]
  - Bone density decreased [Unknown]
  - Anhedonia [Unknown]
  - Pain [Unknown]
  - Tooth fracture [Recovered/Resolved]
  - Emotional distress [Unknown]
  - Renal failure [Unknown]
  - Chronic kidney disease [Not Recovered/Not Resolved]
  - Economic problem [Unknown]

NARRATIVE: CASE EVENT DATE: 20130123
